FAERS Safety Report 12216596 (Version 1)
Quarter: 2016Q1

REPORT INFORMATION
  Report Type: Spontaneous
  Country: US (occurrence: US)
  Receive Date: 20160329
  Receipt Date: 20160329
  Transmission Date: 20160526
  Serious: No
  Sender: FDA-Public Use
  Company Number: US-BAYER-2016-059602

PATIENT
  Age: 47 Year
  Sex: Female
  Weight: 49.89 kg

DRUGS (3)
  1. VITAMIN D [Concomitant]
     Active Substance: CHOLECALCIFEROL
     Dosage: UNK
  2. MIRALAX [Suspect]
     Active Substance: POLYETHYLENE GLYCOL 3350
     Indication: CONSTIPATION
     Dosage: 0.5 DF, ONCE
     Route: 048
     Dates: start: 20160328, end: 20160328
  3. ONE-A-DAY [MINERALS NOS,VITAMINS NOS] [Concomitant]
     Indication: VITAMIN SUPPLEMENTATION
     Dosage: UNK

REACTIONS (2)
  - Product use issue [None]
  - Expired product administered [None]

NARRATIVE: CASE EVENT DATE: 20160328
